FAERS Safety Report 13398797 (Version 5)
Quarter: 2017Q3

REPORT INFORMATION
  Report Type: Report from Study
  Country: US (occurrence: US)
  Receive Date: 20170403
  Receipt Date: 20170808
  Transmission Date: 20171127
  Serious: Yes (Death, Hospitalization)
  Sender: FDA-Public Use
  Company Number: PHHO2017US004552

PATIENT
  Age: 69 Year
  Sex: Female
  Weight: 138.2 kg

DRUGS (3)
  1. DECITABINE. [Suspect]
     Active Substance: DECITABINE
     Indication: ACUTE MYELOID LEUKAEMIA
     Dosage: 49 MG, DAY 1-5, EVERY 28 DAYS +3 DAYS
     Route: 042
     Dates: start: 20170227, end: 20170303
  2. DECITABINE. [Suspect]
     Active Substance: DECITABINE
     Indication: ACUTE MYELOID LEUKAEMIA
     Dosage: 49 MG, DAY 1-5, EVERY 28 DAYS +3 DAYS
     Route: 042
     Dates: start: 20170227, end: 20170303
  3. RYDAPT [Suspect]
     Active Substance: MIDOSTAURIN
     Indication: ACUTE MYELOID LEUKAEMIA
     Dosage: 50 MG, BID DAY 8-21 FOR 14 DAYS
     Route: 048
     Dates: start: 20170306

REACTIONS (6)
  - Tumour lysis syndrome [Recovered/Resolved]
  - Febrile neutropenia [Not Recovered/Not Resolved]
  - Leukocytosis [Recovered/Resolved]
  - Atrial fibrillation [Not Recovered/Not Resolved]
  - Myocardial infarction [Recovered/Resolved]
  - Malignant neoplasm progression [Fatal]

NARRATIVE: CASE EVENT DATE: 20170228
